FAERS Safety Report 20064508 (Version 1)
Quarter: 2021Q4

REPORT INFORMATION
  Report Type: Spontaneous
  Country: ES (occurrence: ES)
  Receive Date: 20211112
  Receipt Date: 20211112
  Transmission Date: 20220304
  Serious: Yes (Life-Threatening, Hospitalization)
  Sender: FDA-Public Use
  Company Number: None

PATIENT
  Age: 62 Year
  Sex: Male

DRUGS (4)
  1. TACROLIMUS [Suspect]
     Active Substance: TACROLIMUS
     Indication: Lung transplant
     Dosage: UNK
     Route: 048
     Dates: start: 20210821
  2. VALGANCICLOVIR [Interacting]
     Active Substance: VALGANCICLOVIR
     Indication: Brain abscess
     Dosage: 900 MG, Q12H
     Route: 048
     Dates: start: 20210825, end: 20210830
  3. AMIKACIN SULFATE [Interacting]
     Active Substance: AMIKACIN SULFATE
     Indication: Brain abscess
     Dosage: 525 MG, Q12H
     Route: 042
     Dates: start: 20210820, end: 20210830
  4. CILASTATIN SODIUM\IMIPENEM [Interacting]
     Active Substance: CILASTATIN SODIUM\IMIPENEM
     Indication: Brain abscess
     Dosage: 500 MG, Q6H
     Route: 042
     Dates: start: 20210820, end: 20210830

REACTIONS (2)
  - Depressed level of consciousness [Recovered/Resolved]
  - Generalised tonic-clonic seizure [Recovered/Resolved]

NARRATIVE: CASE EVENT DATE: 20210827
